FAERS Safety Report 8343353-4 (Version None)
Quarter: 2012Q2

REPORT INFORMATION
  Report Type: 
  Country: None (occurrence: None)
  Receive Date: 20120508
  Receipt Date: 20120426
  Transmission Date: 20120825
  Serious: Yes (Other)
  Sender: FDA-Public Use
  Company Number: US-BRISTOL-MYERS SQUIBB COMPANY-16556581

PATIENT
  Age: 59 Year
  Sex: Female
  Weight: 121 kg

DRUGS (1)
  1. AVAPRO [Suspect]

REACTIONS (4)
  - HYPERTENSION [None]
  - VENTRICULAR EXTRASYSTOLES [None]
  - ARTERIAL OCCLUSIVE DISEASE [None]
  - BLOOD CHOLESTEROL ABNORMAL [None]
